FAERS Safety Report 11895782 (Version 1)
Quarter: 2016Q1

REPORT INFORMATION
  Report Type: Spontaneous
  Country: US (occurrence: US)
  Receive Date: 20160107
  Receipt Date: 20160107
  Transmission Date: 20160526
  Serious: Yes (Other)
  Sender: FDA-Public Use
  Company Number: US-TEVA-623090USA

PATIENT
  Age: 68 Year
  Sex: Male

DRUGS (1)
  1. COPAXONE [Suspect]
     Active Substance: GLATIRAMER ACETATE
     Indication: MULTIPLE SCLEROSIS
     Route: 058
     Dates: start: 20150902

REACTIONS (5)
  - Off label use [Unknown]
  - Primary progressive multiple sclerosis [Unknown]
  - Multiple sclerosis [Unknown]
  - Bedridden [Unknown]
  - Movement disorder [Unknown]

NARRATIVE: CASE EVENT DATE: 201512
